FAERS Safety Report 6878758-1 (Version None)
Quarter: 2010Q3

REPORT INFORMATION
  Report Type: 
  Country: None (occurrence: None)
  Receive Date: 20100728
  Receipt Date: 20100714
  Transmission Date: 20110219
  Serious: Yes (Hospitalization, Other)
  Sender: FDA-Public Use
  Company Number: US-BAYER-201016764NA

PATIENT
  Age: 69 Year
  Sex: Female

DRUGS (9)
  1. BETASERON [Suspect]
     Indication: RELAPSING-REMITTING MULTIPLE SCLEROSIS
     Dosage: TOTAL DAILY DOSE: 8 MIU
     Route: 058
     Dates: start: 20090915, end: 20100315
  2. BETASERON [Suspect]
     Route: 058
     Dates: start: 20100322, end: 20100414
  3. BETASERON [Suspect]
     Dosage: TOTAL DAILY DOSE: 8 MIU
     Route: 058
     Dates: start: 20100421
  4. CHEMO INFUSIONS [Suspect]
     Indication: BREAST CANCER
  5. ARIMIDEX [Concomitant]
     Indication: BREAST CANCER
     Route: 048
  6. NEURONTIN [Concomitant]
  7. BACLOFEN [Concomitant]
  8. CYMBALTA [Concomitant]
  9. ATIVAN [Concomitant]

REACTIONS (5)
  - BLOOD PRESSURE DECREASED [None]
  - BREAST CANCER FEMALE [None]
  - FEELING ABNORMAL [None]
  - LYMPHADENOPATHY [None]
  - WHITE BLOOD CELL COUNT DECREASED [None]
